FAERS Safety Report 15935562 (Version 5)
Quarter: 2019Q2

REPORT INFORMATION
  Report Type: Other
  Country: DE (occurrence: DE)
  Receive Date: 20190208
  Receipt Date: 20190406
  Transmission Date: 20190711
  Serious: Yes (Other)
  Sender: FDA-Public Use
  Company Number: DE-ACCORD-106003

PATIENT
  Age: 6 Year
  Sex: Male

DRUGS (11)
  1. SORAFENIB/SORAFENIB TOSILATE [Suspect]
     Active Substance: SORAFENIB TOSYLATE
     Indication: EWING^S SARCOMA
     Route: 048
  2. ARSENIC [Suspect]
     Active Substance: ARSENIC
     Indication: EWING^S SARCOMA
     Route: 048
  3. PACLITAXEL/PACLITAXEL LIPOSOME [Suspect]
     Active Substance: PACLITAXEL
     Indication: EWING^S SARCOMA
     Dosage: 175 MG/M2, UNK, ALSO RECEIVED 200 MG/M2 MILLIGRAM(S)/SQ. METER
     Route: 042
  4. IDARUBICIN [Suspect]
     Active Substance: IDARUBICIN
     Indication: EWING^S SARCOMA
     Dosage: 5.5 MG/M2, UNK
     Route: 048
  5. TOCOPHEROL [Suspect]
     Active Substance: TOCOPHEROL
     Indication: EWING^S SARCOMA
     Dosage: 400 IE
     Route: 048
  6. TRETINOIN/TRETINOIN TOCOFERIL [Suspect]
     Active Substance: TRETINOIN TOCOFERIL
     Indication: EWING^S SARCOMA
     Route: 048
  7. VORINOSTAT [Suspect]
     Active Substance: VORINOSTAT
     Indication: EWING^S SARCOMA
     Dosage: 100 MG, UNK,INCREASED AFTER DISEASE PROGRESSION, ALSO RECEIVED 400 MG
     Route: 048
  8. ICLUSIG [Suspect]
     Active Substance: PONATINIB
     Indication: EWING^S SARCOMA
     Dosage: 15 MG, UNK
     Route: 048
  9. CRIZOTINIB [Suspect]
     Active Substance: CRIZOTINIB
     Indication: EWING^S SARCOMA
     Route: 048
  10. VINCRISTINE [Suspect]
     Active Substance: VINCRISTINE
     Indication: EWING^S SARCOMA
     Route: 065
  11. TRIAMTERENE. [Suspect]
     Active Substance: TRIAMTERENE
     Indication: EWING^S SARCOMA
     Route: 048

REACTIONS (7)
  - Anaemia [Unknown]
  - Thrombocytopenia [Unknown]
  - Off label use [Unknown]
  - Malignant neoplasm progression [Unknown]
  - Lymphopenia [Unknown]
  - Activated partial thromboplastin time prolonged [Unknown]
  - Neutropenia [Unknown]
